FAERS Safety Report 10184973 (Version 1)
Quarter: 2014Q2

REPORT INFORMATION
  Report Type: Spontaneous
  Country: GB (occurrence: None)
  Receive Date: 20140519
  Receipt Date: 20140519
  Transmission Date: 20141212
  Serious: Yes (Disabling, Other)
  Sender: FDA-Public Use
  Company Number: AUR-APL-2014-05622

PATIENT
  Age: 65 Year
  Sex: Male
  Weight: 100 kg

DRUGS (6)
  1. SIMVASTATIN (SIMVASTATIN) [Suspect]
     Indication: HYPERCHOLESTEROLAEMIA
     Route: 048
     Dates: start: 200001, end: 20140401
  2. DOMPERIDONE (DOMPERIDONE) [Concomitant]
  3. FINASTERIDE (FINASTERIDE) [Concomitant]
  4. OMEPRAZOLE (OMEPRAZOLE) [Concomitant]
  5. SENNA (SENNA ALEXANDRINA) [Concomitant]
  6. TAMSULOSIN (TAMSULOSIN) [Concomitant]

REACTIONS (4)
  - Abdominal pain [None]
  - Nephrolithiasis [None]
  - Muscular weakness [None]
  - Asthenia [None]
